FAERS Safety Report 7269760-9 (Version None)
Quarter: 2011Q1

REPORT INFORMATION
  Report Type: 
  Country: None (occurrence: None)
  Receive Date: 20110202
  Receipt Date: 20110126
  Transmission Date: 20110831
  Serious: Yes (Other)
  Sender: FDA-Public Use
  Company Number: JP-PFIZER INC-2011019055

PATIENT
  Age: 45 Year
  Sex: Female

DRUGS (2)
  1. ARA-C [Suspect]
     Indication: ACUTE MYELOID LEUKAEMIA
  2. IDARUBICIN HCL [Suspect]
     Indication: ACUTE MYELOID LEUKAEMIA

REACTIONS (2)
  - MYELODYSPLASTIC SYNDROME [None]
  - NEOPLASM MALIGNANT [None]
